FAERS Safety Report 24321426 (Version 1)
Quarter: 2024Q3

REPORT INFORMATION
  Report Type: Spontaneous
  Country: US (occurrence: US)
  Receive Date: 20240916
  Receipt Date: 20240916
  Transmission Date: 20241017
  Serious: No
  Sender: ABBVIE
  Company Number: US-ABBVIE-5923102

PATIENT
  Sex: Female

DRUGS (1)
  1. BOTOX [Suspect]
     Active Substance: ONABOTULINUMTOXINA
     Indication: Skin wrinkling
     Dosage: TIME INTERVAL: AS NECESSARY
     Route: 065
     Dates: start: 202312, end: 202312

REACTIONS (4)
  - Injection site pain [Recovering/Resolving]
  - Speech disorder [Not Recovered/Not Resolved]
  - Diplopia [Recovering/Resolving]
  - Hypoaesthesia oral [Recovering/Resolving]
